FAERS Safety Report 4694767-5 (Version None)
Quarter: 2005Q2

REPORT INFORMATION
  Report Type: 
  Country: None (occurrence: None)
  Receive Date: 20050620
  Receipt Date: 20050609
  Transmission Date: 20051028
  Serious: Yes (Other)
  Sender: FDA-Public Use
  Company Number: GB-BRISTOL-MYERS SQUIBB COMPANY-12998746

PATIENT
  Age: 34 Year
  Sex: Male
  Weight: 86 kg

DRUGS (6)
  1. REYATAZ [Suspect]
     Indication: HIV INFECTION
     Route: 048
     Dates: start: 20050601, end: 20050608
  2. RITONAVIR [Concomitant]
     Indication: HIV INFECTION
     Route: 048
     Dates: start: 20050601, end: 20050608
  3. ABACAVIR [Concomitant]
     Indication: HIV INFECTION
     Route: 048
     Dates: start: 20050526
  4. TENOFOVIR [Concomitant]
     Indication: HIV INFECTION
     Route: 048
     Dates: start: 20050526
  5. KALETRA [Concomitant]
     Indication: HIV INFECTION
     Route: 048
     Dates: start: 20030101, end: 20050421
  6. COMBIVIR [Concomitant]
     Indication: HIV INFECTION
     Dosage: ZIDOVUDINE 300 MG, LAMIVUDINE 150 MG
     Route: 048
     Dates: start: 20030101, end: 20050421

REACTIONS (4)
  - HYPERBILIRUBINAEMIA [None]
  - JAUNDICE [None]
  - LIVER FUNCTION TEST ABNORMAL [None]
  - OCULAR ICTERUS [None]
